FAERS Safety Report 21048890 (Version 2)
Quarter: 2022Q4

REPORT INFORMATION
  Report Type: Report from Study
  Country: RO (occurrence: RO)
  Receive Date: 20220706
  Receipt Date: 20221102
  Transmission Date: 20230113
  Serious: Yes (Hospitalization, Other)
  Sender: FDA-Public Use
  Company Number: RO-ABBVIE-22K-135-4456829-00

PATIENT
  Age: 61 Year
  Sex: Male

DRUGS (15)
  1. HUMIRA [Suspect]
     Active Substance: ADALIMUMAB
     Indication: Ankylosing spondylitis
     Route: 058
     Dates: start: 20170815, end: 20220611
  2. FUROSEMID LPH [Concomitant]
     Indication: Product used for unknown indication
     Dosage: 1 TABLET
     Route: 048
     Dates: start: 20220630
  3. PREDNISONE [Concomitant]
     Active Substance: PREDNISONE
     Indication: Product used for unknown indication
     Dosage: 8 TABLET
     Route: 048
     Dates: start: 20220630
  4. ALFACALCIDOL [Concomitant]
     Active Substance: ALFACALCIDOL
     Indication: Product used for unknown indication
     Dosage: 1 TABLET
     Route: 048
     Dates: start: 20220630
  5. Enterolactis [Concomitant]
     Indication: Gastrointestinal disorder prophylaxis
     Dosage: 2 TABLET
     Route: 048
     Dates: start: 20220630
  6. NEXIUM [Concomitant]
     Active Substance: ESOMEPRAZOLE MAGNESIUM
     Indication: Prophylaxis
     Dosage: 1 TABLET
     Route: 048
     Dates: start: 20220630
  7. ATORVASTATIN [Concomitant]
     Active Substance: ATORVASTATIN
     Indication: Product used for unknown indication
     Dosage: 1 TABLET
     Route: 048
     Dates: start: 2021
  8. LERIDIP [Concomitant]
     Indication: Hypertension
     Dosage: 2 TABLET?START DATE TEXT: MANY YEARS PRIOR THE REPORT
     Route: 048
  9. SINTROM [Concomitant]
     Active Substance: ACENOCOUMAROL
     Indication: Hypertension
     Dosage: 0.5 TABLET
     Route: 048
     Dates: start: 202103
  10. BISOPROLOL FUMARATE [Concomitant]
     Active Substance: BISOPROLOL FUMARATE
     Indication: Hypertension
     Dosage: 1 TABLET
     Route: 048
  11. Eficef [Concomitant]
     Indication: Urinary tract infection
     Dosage: 2 TABLET
     Route: 048
     Dates: start: 20220612, end: 20220616
  12. LEVOFLOXACIN [Concomitant]
     Active Substance: LEVOFLOXACIN
     Indication: Urinary tract infection
     Dosage: 1 TABLET
     Route: 048
     Dates: start: 20220612, end: 20220616
  13. MEROPENEM [Concomitant]
     Active Substance: MEROPENEM
     Indication: Urinary tract infection
     Dosage: UNKNOWN
     Route: 051
     Dates: start: 20220617, end: 20220630
  14. MEROPENEM [Concomitant]
     Active Substance: MEROPENEM
     Indication: Urinary tract infection
     Dosage: UNKNOWN
     Route: 051
     Dates: start: 20220617, end: 20220630
  15. TAMSULOSIN [Concomitant]
     Active Substance: TAMSULOSIN
     Indication: Prostatic adenoma
     Dosage: 1 TABLET
     Route: 048
     Dates: start: 20220617

REACTIONS (6)
  - Blood urea decreased [Not Recovered/Not Resolved]
  - Blood creatinine increased [Not Recovered/Not Resolved]
  - Haemoglobin decreased [Not Recovered/Not Resolved]
  - Cerebrovascular accident [Recovered/Resolved]
  - Urinary tract infection [Not Recovered/Not Resolved]
  - Prostatic adenoma [Not Recovered/Not Resolved]

NARRATIVE: CASE EVENT DATE: 20211001
